FAERS Safety Report 19813212 (Version 1)
Quarter: 2021Q3

REPORT INFORMATION
  Report Type: Spontaneous
  Country: US (occurrence: US)
  Receive Date: 20210909
  Receipt Date: 20210909
  Transmission Date: 20211014
  Serious: No
  Sender: FDA-Public Use
  Company Number: None

PATIENT
  Age: 75 Year
  Sex: Male
  Weight: 76.5 kg

DRUGS (8)
  1. GABAPENTIN. [Concomitant]
     Active Substance: GABAPENTIN
  2. ENTRESTO [Concomitant]
     Active Substance: SACUBITRIL\VALSARTAN
  3. PREDNISOLONE. [Concomitant]
     Active Substance: PREDNISOLONE
  4. JARDIANCE [Suspect]
     Active Substance: EMPAGLIFLOZIN
     Indication: DIABETES MELLITUS
     Dosage: ?          QUANTITY:1 TABLET(S);?
     Route: 048
  5. CARVEDILOL. [Concomitant]
     Active Substance: CARVEDILOL
  6. BABY ASPIRIN [Concomitant]
     Active Substance: ASPIRIN
  7. VITAMIN D [Concomitant]
     Active Substance: VITAMIN D NOS
  8. EZETIMIBE. [Concomitant]
     Active Substance: EZETIMIBE

REACTIONS (2)
  - Glycosylated haemoglobin increased [None]
  - Blood glucose increased [None]

NARRATIVE: CASE EVENT DATE: 20200612
